FAERS Safety Report 6332455-X (Version None)
Quarter: 2009Q3

REPORT INFORMATION
  Report Type: 
  Country: None (occurrence: None)
  Receive Date: 20090827
  Receipt Date: 20090827
  Transmission Date: 20100115
  Serious: No
  Sender: FDA-Public Use
  Company Number: None

PATIENT
  Age: 40 Year
  Sex: Male
  Weight: 90.7194 kg

DRUGS (7)
  1. CYCLOBENZAPRINE [Suspect]
     Indication: INTERVERTEBRAL DISC DISORDER
     Dosage: 10 MG 1 DAILY BEDTIME
     Dates: start: 20090622, end: 20090629
  2. CYCLOBENZAPRINE [Suspect]
     Indication: LIGAMENT DISORDER
     Dosage: 10 MG 1 DAILY BEDTIME
     Dates: start: 20090622, end: 20090629
  3. CYCLOBENZAPRINE [Suspect]
     Indication: MUSCLE RUPTURE
     Dosage: 10 MG 1 DAILY BEDTIME
     Dates: start: 20090622, end: 20090629
  4. CYCLOBENZAPRINE [Suspect]
     Indication: TENDON DISORDER
     Dosage: 10 MG 1 DAILY BEDTIME
     Dates: start: 20090622, end: 20090629
  5. IC TRAMADOL HCL 50 MG TEVA USA [Suspect]
     Indication: LIGAMENT DISORDER
     Dosage: 50 MG 1 EVERY 4-6 HRS
     Dates: start: 20090703, end: 20090801
  6. IC TRAMADOL HCL 50 MG TEVA USA [Suspect]
     Indication: MUSCLE RUPTURE
     Dosage: 50 MG 1 EVERY 4-6 HRS
     Dates: start: 20090703, end: 20090801
  7. IC TRAMADOL HCL 50 MG TEVA USA [Suspect]
     Indication: TENDON DISORDER
     Dosage: 50 MG 1 EVERY 4-6 HRS
     Dates: start: 20090703, end: 20090801

REACTIONS (3)
  - DRUG INEFFECTIVE [None]
  - HYPOAESTHESIA [None]
  - RENAL PAIN [None]
